FAERS Safety Report 4356018-0 (Version None)
Quarter: 2004Q2

REPORT INFORMATION
  Report Type: 
  Country: None (occurrence: None)
  Receive Date: 20040505
  Receipt Date: 20040422
  Transmission Date: 20050107
  Serious: Yes (Hospitalization)
  Sender: FDA-Public Use
  Company Number: WAES 0403USA00135

PATIENT
  Age: 56 Year
  Sex: Female
  Weight: 63.05 kg

DRUGS (9)
  1. VIOXX [Suspect]
  2. BLINDED THERAPY UNK [Suspect]
     Indication: DIABETES MELLITUS
     Dates: start: 20010829
  3. BLINDED THERAPY UNK [Suspect]
     Indication: DIABETES MELLITUS NON-INSULIN-DEPENDENT
     Dates: start: 20010829
  4. BLINDED THERAPY UNK [Suspect]
     Indication: DIABETES MELLITUS
     Dates: start: 20010829
  5. BLINDED THERAPY UNK [Suspect]
     Indication: DIABETES MELLITUS NON-INSULIN-DEPENDENT
     Dates: start: 20010829
  6. CELEBREX [Suspect]
     Indication: OSTEOARTHRITIS
  7. LEVAQUIN [Suspect]
  8. LIPITOR [Concomitant]
  9. VICODIN ES [Concomitant]

REACTIONS (9)
  - ACTIVITIES OF DAILY LIVING IMPAIRED [None]
  - ARTHRALGIA [None]
  - DEPRESSION [None]
  - DRUG HYPERSENSITIVITY [None]
  - DUODENITIS [None]
  - DYSPNOEA [None]
  - GASTRITIS [None]
  - JOINT SWELLING [None]
  - PYREXIA [None]
